FAERS Safety Report 7064469-9 (Version None)
Quarter: 2010Q4

REPORT INFORMATION
  Report Type: 
  Country: None (occurrence: None)
  Receive Date: 20101027
  Receipt Date: 20101018
  Transmission Date: 20110411
  Serious: Yes (Other)
  Sender: FDA-Public Use
  Company Number: JP-PFIZER INC-2010131357

PATIENT
  Age: 79 Year
  Sex: Male

DRUGS (2)
  1. CHAMPIX [Suspect]
     Dosage: 2 MG, 1X/DAY
     Dates: start: 20100929
  2. LENDORMIN [Concomitant]
     Dosage: UNK

REACTIONS (3)
  - MICTURITION FREQUENCY DECREASED [None]
  - NOCTURIA [None]
  - URINE OUTPUT DECREASED [None]
